FAERS Safety Report 4847529-X (Version None)
Quarter: 2005Q4

REPORT INFORMATION
  Report Type: 
  Country: None (occurrence: None)
  Receive Date: 20051207
  Receipt Date: 20051018
  Transmission Date: 20060501
  Serious: Yes (Other)
  Sender: FDA-Public Use
  Company Number: PHNU2005DE03487

PATIENT
  Sex: Male

DRUGS (1)
  1. EMSELEX EXTENDED RELEASE [Suspect]
     Indication: BLADDER DISORDER
     Route: 048

REACTIONS (2)
  - LEUKAEMIA [None]
  - WHITE BLOOD CELL COUNT INCREASED [None]
